FAERS Safety Report 18816469 (Version 1)
Quarter: 2021Q1

REPORT INFORMATION
  Report Type: Spontaneous
  Country: US (occurrence: US)
  Receive Date: 20210201
  Receipt Date: 20210201
  Transmission Date: 20210419
  Serious: No
  Sender: FDA-Public Use
  Company Number: US-CIPLA LTD.-2020US09056

PATIENT

DRUGS (9)
  1. GABAPENTIN. [Suspect]
     Active Substance: GABAPENTIN
     Dosage: 300 MILLIGRAM, BID, SECOND REFILL
     Route: 048
     Dates: start: 2020
  2. LOSARTAN. [Concomitant]
     Active Substance: LOSARTAN
     Indication: BLOOD PRESSURE ABNORMAL
     Dosage: 100 MILLIGRAM, QD, FOR YEARS
     Route: 065
  3. ALFUZOSIN [Concomitant]
     Active Substance: ALFUZOSIN
     Indication: PROSTATIC DISORDER
     Dosage: 10 MILLIGRAM, QD, FOR YEARS
     Route: 065
  4. GABAPENTIN. [Suspect]
     Active Substance: GABAPENTIN
     Indication: SCIATICA
     Dosage: 300 MILLIGRAM, BID
     Route: 048
     Dates: start: 202010
  5. AMLODIPINE [Concomitant]
     Active Substance: AMLODIPINE BESYLATE
     Indication: BLOOD PRESSURE ABNORMAL
     Dosage: 5 MILLIGRAM, QD, FOR YEARS (CIPLA)
     Route: 065
  6. ADVAIR HFA [Concomitant]
     Active Substance: FLUTICASONE PROPIONATE\SALMETEROL XINAFOATE
     Indication: ASTHMA
     Dosage: UNK, BID, (115/21) FOR YEARS
     Route: 065
  7. EZETIMIBE. [Concomitant]
     Active Substance: EZETIMIBE
     Indication: BLOOD CHOLESTEROL ABNORMAL
     Dosage: 10 MILLIGRAM, QD, FOR YEARS
     Route: 065
  8. FINASTERIDE. [Concomitant]
     Active Substance: FINASTERIDE
     Indication: PROSTATIC DISORDER
     Dosage: 5 MILLIGRAM, QD, FOR YEARS
     Route: 065
  9. PRAVASTATIN. [Concomitant]
     Active Substance: PRAVASTATIN
     Indication: BLOOD CHOLESTEROL ABNORMAL
     Dosage: 40 MILLIGRAM, QD,  FOR YEARS
     Route: 065

REACTIONS (3)
  - Therapeutic response unexpected [Unknown]
  - Off label use [Unknown]
  - Drug ineffective for unapproved indication [Unknown]

NARRATIVE: CASE EVENT DATE: 202010
